FAERS Safety Report 24250976 (Version 1)
Quarter: 2024Q3

REPORT INFORMATION
  Report Type: Spontaneous
  Country: US (occurrence: None)
  Receive Date: 20240825
  Receipt Date: 20240825
  Transmission Date: 20241016
  Serious: Yes (Other)
  Sender: Public
  Company Number: None

PATIENT
  Age: 45 Year
  Sex: Female
  Weight: 84.6 kg

DRUGS (5)
  1. ZEPBOUND [Suspect]
     Active Substance: TIRZEPATIDE
     Indication: Weight decreased
     Dosage: OTHER QUANTITY : 1 PEN;?OTHER FREQUENCY : WEEKLY;?
     Route: 030
     Dates: start: 20240824
  2. SERTRALINE [Concomitant]
     Active Substance: SERTRALINE HYDROCHLORIDE
  3. CRESTOR [Concomitant]
     Active Substance: ROSUVASTATIN CALCIUM
  4. VITAMIN D [Concomitant]
     Active Substance: VITAMIN D NOS
  5. Mag Gly [Concomitant]

REACTIONS (9)
  - Pain of skin [None]
  - Myalgia [None]
  - Musculoskeletal chest pain [None]
  - Pain in extremity [None]
  - Pain in extremity [None]
  - Axillary pain [None]
  - Musculoskeletal pain [None]
  - Musculoskeletal pain [None]
  - Inflammation [None]

NARRATIVE: CASE EVENT DATE: 20240824
